FAERS Safety Report 6203498-1 (Version None)
Quarter: 2009Q2

REPORT INFORMATION
  Report Type: 
  Country: None (occurrence: None)
  Receive Date: 20090527
  Receipt Date: 20090512
  Transmission Date: 20091009
  Serious: Yes (Other)
  Sender: FDA-Public Use
  Company Number: PHHY2009DK18665

PATIENT

DRUGS (3)
  1. EXELON [Suspect]
     Dosage: UNK
     Route: 048
  2. EXELON [Suspect]
     Dosage: UNK
     Route: 062
  3. EXELON [Suspect]
     Dosage: UNK
     Dates: start: 20090331

REACTIONS (6)
  - APPLICATION SITE RASH [None]
  - ECZEMA [None]
  - ERYTHEMA [None]
  - HYPERSENSITIVITY [None]
  - RASH GENERALISED [None]
  - SKIN EXFOLIATION [None]
